FAERS Safety Report 17577558 (Version 1)
Quarter: 2020Q1

REPORT INFORMATION
  Report Type: Spontaneous
  Country: US (occurrence: US)
  Receive Date: 20200319
  Receipt Date: 20200319
  Transmission Date: 20200409
  Serious: Yes (Hospitalization)
  Sender: FDA-Public Use
  Company Number: None

PATIENT
  Sex: Female

DRUGS (23)
  1. AMOX/K CLAV [Concomitant]
     Active Substance: AMOXICILLIN\CLAVULANATE POTASSIUM
  2. IMATINIB MES  400MG TAB [Suspect]
     Active Substance: IMATINIB MESYLATE
     Indication: PHILADELPHIA CHROMOSOME POSITIVE
     Route: 048
     Dates: start: 20160310
  3. GABAPENTIN. [Concomitant]
     Active Substance: GABAPENTIN
  4. HYDRALAZINE [Concomitant]
     Active Substance: HYDRALAZINE HYDROCHLORIDE
  5. LOSARTAN POT [Concomitant]
     Active Substance: LOSARTAN POTASSIUM
  6. CEPHALEXIN. [Concomitant]
     Active Substance: CEPHALEXIN
  7. CEFUROXIME. [Concomitant]
     Active Substance: CEFUROXIME
  8. LEVOFLOXACIN. [Concomitant]
     Active Substance: LEVOFLOXACIN
  9. MUPIROCIN. [Concomitant]
     Active Substance: MUPIROCIN
  10. OMEPRAZOLE. [Concomitant]
     Active Substance: OMEPRAZOLE
  11. ATORVASTATIN [Concomitant]
     Active Substance: ATORVASTATIN
  12. DOXAZOSIN [Concomitant]
     Active Substance: DOXAZOSIN MESYLATE
  13. IMATINIB MES  400MG TAB [Suspect]
     Active Substance: IMATINIB MESYLATE
     Indication: CHRONIC MYELOID LEUKAEMIA
     Route: 048
     Dates: start: 20160310
  14. AMLODIPINE [Concomitant]
     Active Substance: AMLODIPINE BESYLATE
  15. CARVEDIOL [Concomitant]
     Active Substance: CARVEDILOL
  16. FUROSEMIDE. [Concomitant]
     Active Substance: FUROSEMIDE
  17. OXYCODONE AND ACETAMINOPHEN [Concomitant]
     Active Substance: ACETAMINOPHEN\OXYCODONE HYDROCHLORIDE
  18. POT CHLORIDE [Concomitant]
     Active Substance: POTASSIUM CHLORIDE
  19. QUETIAPINE. [Concomitant]
     Active Substance: QUETIAPINE
  20. ESCITALOPRAM [Concomitant]
     Active Substance: ESCITALOPRAM OXALATE
  21. ALEVE [Concomitant]
     Active Substance: NAPROXEN SODIUM
  22. ELIQUIS [Concomitant]
     Active Substance: APIXABAN
  23. TAMSULOSIN [Concomitant]
     Active Substance: TAMSULOSIN

REACTIONS (3)
  - Limb operation [None]
  - Upper limb fracture [None]
  - Therapy cessation [None]
